FAERS Safety Report 7062606-3 (Version None)
Quarter: 2010Q4

REPORT INFORMATION
  Report Type: 
  Country: None (occurrence: None)
  Receive Date: 20101026
  Receipt Date: 20091208
  Transmission Date: 20110411
  Serious: No
  Sender: FDA-Public Use
  Company Number: US-PFIZER INC-2009288430

PATIENT
  Sex: Female
  Weight: 86.2 kg

DRUGS (1)
  1. LIPITOR [Suspect]
     Indication: BLOOD CHOLESTEROL INCREASED
     Dates: start: 20091001, end: 20091001

REACTIONS (3)
  - INFLUENZA LIKE ILLNESS [None]
  - PYREXIA [None]
  - RASH [None]
